FAERS Safety Report 6474034-X (Version None)
Quarter: 2009Q4

REPORT INFORMATION
  Report Type: 
  Country: None (occurrence: None)
  Receive Date: 20091123
  Receipt Date: 20091005
  Transmission Date: 20100525
  Serious: No
  Sender: FDA-Public Use
  Company Number: 8052960

PATIENT
  Age: 29 Year
  Sex: Male
  Weight: 58.9 kg

DRUGS (8)
  1. CIMZIA [Suspect]
     Indication: CROHN'S DISEASE
     Dosage: 400 MG /M SC
     Route: 058
     Dates: start: 20090401, end: 20090101
  2. CIMZIA [Suspect]
     Indication: CROHN'S DISEASE
     Dosage: 200 MG 1/2W SC
     Route: 058
     Dates: start: 20080801
  3. ASACOL [Concomitant]
  4. NEXIUM [Concomitant]
  5. ZYRTEC [Concomitant]
  6. LEXAPRO [Concomitant]
  7. ANDROGEL [Concomitant]
  8. ADDERALL 10 [Concomitant]

REACTIONS (7)
  - ABDOMINAL PAIN [None]
  - ARTHRALGIA [None]
  - ATTENTION DEFICIT/HYPERACTIVITY DISORDER [None]
  - DIARRHOEA HAEMORRHAGIC [None]
  - GINGIVAL BLEEDING [None]
  - INAPPROPRIATE SCHEDULE OF DRUG ADMINISTRATION [None]
  - OCULAR HYPERAEMIA [None]
